FAERS Safety Report 10786252 (Version 1)
Quarter: 2015Q1

REPORT INFORMATION
  Report Type: Spontaneous
  Country: US (occurrence: None)
  Receive Date: 20150210
  Receipt Date: 20150210
  Transmission Date: 20150721
  Serious: Yes (Other)
  Sender: FDA-Public Use
  Company Number: None

PATIENT
  Age: 13 Year
  Sex: Male

DRUGS (10)
  1. MELATONIN [Concomitant]
     Active Substance: MELATONIN
  2. SINGULAIR [Concomitant]
     Active Substance: MONTELUKAST SODIUM
  3. QUINIDINE [Concomitant]
     Active Substance: QUINIDINE
  4. FLUTICASONE [Concomitant]
     Active Substance: FLUTICASONE\FLUTICASONE PROPIONATE
  5. PREVACID ADN ALTU [Concomitant]
  6. INCRELEX [Suspect]
     Active Substance: MECASERMIN
     Indication: GONADAL DYSGENESIS
     Dosage: 20 UNITS
     Route: 058
     Dates: start: 20150114
  7. OMEGA 3-6-9 /01333901/ [Concomitant]
     Active Substance: OMEGA-3 FATTY ACIDS
  8. MULTIVIT [Concomitant]
     Active Substance: VITAMINS
  9. BUDESONIDE. [Concomitant]
     Active Substance: BUDESONIDE
  10. CLONIDINE. [Concomitant]
     Active Substance: CLONIDINE

REACTIONS (1)
  - Pain [None]

NARRATIVE: CASE EVENT DATE: 201501
